FAERS Safety Report 7716330-1 (Version None)
Quarter: 2011Q3

REPORT INFORMATION
  Report Type: 
  Country: None (occurrence: None)
  Receive Date: 20110829
  Receipt Date: 20110819
  Transmission Date: 20111222
  Serious: Yes (Other)
  Sender: FDA-Public Use
  Company Number: PHFR2011IE01803

PATIENT
  Sex: Female

DRUGS (7)
  1. CLOZAPINE [Suspect]
     Dosage: 525 MG
  2. ZOPICLONE [Concomitant]
     Dosage: 7.5 MG, UNK
     Route: 048
  3. CLOZAPINE [Suspect]
     Indication: PSYCHOTIC DISORDER
     Route: 048
     Dates: start: 20010701
  4. RANITIDINE [Concomitant]
     Dosage: 150 MG, BID
  5. TOLTERODINE TARTRATE [Concomitant]
     Dosage: 2 MG, BID
     Route: 048
  6. HYOSCINE [Concomitant]
     Dosage: 300 MG, BID
  7. CLONAZEPAM [Concomitant]
     Dosage: 1 MG
     Route: 048

REACTIONS (4)
  - NEUTROPHILIA [None]
  - HYPERCHOLESTEROLAEMIA [None]
  - WHITE BLOOD CELL COUNT INCREASED [None]
  - RESPIRATORY TRACT INFECTION [None]
